FAERS Safety Report 15429446 (Version 1)
Quarter: 2018Q3

REPORT INFORMATION
  Report Type: Spontaneous
  Country: NL (occurrence: NL)
  Receive Date: 20180926
  Receipt Date: 20180926
  Transmission Date: 20181010
  Serious: Yes (Hospitalization)
  Sender: FDA-Public Use
  Company Number: NL-009507513-1809NLD009381

PATIENT
  Age: 49 Year
  Sex: Female
  Weight: 63 kg

DRUGS (4)
  1. PARACETAMOL TABLETS BP [Concomitant]
     Active Substance: ACETAMINOPHEN
     Dosage: EXTRA INFO: ZO NODIG 4DD2
     Route: 048
  2. PAMIDRONATE DISODIUM. [Concomitant]
     Active Substance: PAMIDRONATE DISODIUM
     Dosage: EXTRA INFO: 1X PER 4 WEKEN 90MG
     Route: 042
     Dates: start: 20160608
  3. DEXAMETHASONE. [Concomitant]
     Active Substance: DEXAMETHASONE
     Dosage: 1 KEER PER DAG 1 STUK(S)
     Route: 048
  4. PEMBROLIZUMAB. [Suspect]
     Active Substance: PEMBROLIZUMAB
     Indication: METASTATIC MALIGNANT MELANOMA
     Dosage: EXTRA INFO: 1X PER 3 WEKEN
     Route: 042
     Dates: start: 20160609, end: 20160610

REACTIONS (2)
  - Oxygen saturation decreased [Recovering/Resolving]
  - Pneumonitis [Recovering/Resolving]

NARRATIVE: CASE EVENT DATE: 20160609
